FAERS Safety Report 8128097-6 (Version None)
Quarter: 2012Q1

REPORT INFORMATION
  Report Type: 
  Country: None (occurrence: None)
  Receive Date: 20120210
  Receipt Date: 20120208
  Transmission Date: 20120608
  Serious: Yes (Hospitalization)
  Sender: FDA-Public Use
  Company Number: MY-BAYER-2012-012388

PATIENT
  Age: 36 Year
  Sex: Female

DRUGS (4)
  1. ASPIRIN [Suspect]
     Dosage: ASPIRIN
     Route: 048
     Dates: start: 20120118, end: 20120123
  2. ASPIRIN [Suspect]
     Dosage: OMACOR OMEGA -ACID ETHYL ESTERS (TOTAL DAILY DOSE 4G)
     Route: 048
     Dates: start: 20120118, end: 20120123
  3. ASPIRIN [Suspect]
     Dosage: 2 DF, BID
     Route: 048
     Dates: start: 20120125
  4. ASPIRIN [Suspect]
     Dosage: ASPIRIN
     Route: 048
     Dates: start: 20120125

REACTIONS (1)
  - POST PROCEDURAL HAEMORRHAGE [None]
